FAERS Safety Report 5811510-4 (Version None)
Quarter: 2008Q3

REPORT INFORMATION
  Report Type: 
  Country: None (occurrence: None)
  Receive Date: 20080714
  Receipt Date: 20080704
  Transmission Date: 20090109
  Serious: Yes (Life-Threatening, Hospitalization)
  Sender: FDA-Public Use
  Company Number: AZAPT200800191

PATIENT
  Age: 84 Year
  Sex: Male

DRUGS (4)
  1. VIDAZA [Suspect]
     Indication: MYELODYSPLASTIC SYNDROME
     Dosage: (200 MG/M2), SUBCUTANEOUS
     Route: 058
     Dates: start: 20080505
  2. DEFLAZACORTE (DEFLAZACORT) [Concomitant]
  3. OMEPRAZOLE [Concomitant]
  4. AUGMENTIN '125' [Concomitant]

REACTIONS (1)
  - PULMONARY FIBROSIS [None]
